FAERS Safety Report 21333796 (Version 1)
Quarter: 2022Q3

REPORT INFORMATION
  Report Type: Spontaneous
  Country: GB (occurrence: GB)
  Receive Date: 20220914
  Receipt Date: 20220914
  Transmission Date: 20221026
  Serious: Yes (Hospitalization)
  Sender: FDA-Public Use
  Company Number: GB-MYLANLABS-2022M1089473

PATIENT
  Age: 54 Year
  Sex: Male

DRUGS (5)
  1. CLOZARIL [Suspect]
     Active Substance: CLOZAPINE
     Indication: Product used for unknown indication
     Dosage: 350 MILLIGRAM, QD, IN THE MORNING
     Route: 048
     Dates: start: 20030919
  2. CLOZARIL [Suspect]
     Active Substance: CLOZAPINE
     Dosage: 250 MILLIGRAM, QD, AT NIGHT
     Route: 048
     Dates: start: 20030919
  3. AMISULPRIDE [Concomitant]
     Active Substance: AMISULPRIDE
     Dosage: UNK, 150 MG IN MORNING, 100 MG AT NIGHT
     Route: 065
  4. FLUOXETINE [Concomitant]
     Active Substance: FLUOXETINE HYDROCHLORIDE
     Dosage: 20 MILLIGRAM, QD, IN THE MORNING
     Route: 065
  5. SIMVASTATIN [Concomitant]
     Active Substance: SIMVASTATIN
     Dosage: 40 MILLIGRAM, QD, IN THE NIGHT
     Route: 065

REACTIONS (4)
  - Infection [Unknown]
  - Drug level increased [Unknown]
  - Differential white blood cell count abnormal [Unknown]
  - Confusional state [Unknown]

NARRATIVE: CASE EVENT DATE: 20220601
